FAERS Safety Report 4790310-0 (Version None)
Quarter: 2005Q4

REPORT INFORMATION
  Report Type: 
  Country: None (occurrence: None)
  Receive Date: 20051005
  Receipt Date: 20050920
  Transmission Date: 20060501
  Serious: Yes (Hospitalization, Other)
  Sender: FDA-Public Use
  Company Number: USA-2004-0016157

PATIENT
  Sex: Female

DRUGS (14)
  1. OXYCONTIN [Suspect]
     Indication: PAIN
  2. COCAINE (COCAINE) [Concomitant]
  3. MAXALT [Concomitant]
  4. FLONASE [Concomitant]
  5. LOESTRIN 1.5/30 [Concomitant]
  6. ALLEGRA [Concomitant]
  7. PRILOSEC [Concomitant]
  8. AMOXICILLIN [Concomitant]
  9. ZOLOFT [Concomitant]
  10. HUMIBID [Concomitant]
  11. BACTRIM [Concomitant]
  12. ATARAX [Concomitant]
  13. VIBRAMYCIN [Concomitant]
  14. CIPRO [Concomitant]

REACTIONS (35)
  - AGGRESSION [None]
  - AGITATION [None]
  - ANXIETY [None]
  - BIPOLAR DISORDER [None]
  - CONFUSIONAL STATE [None]
  - DECREASED APPETITE [None]
  - DECREASED INTEREST [None]
  - DELUSION [None]
  - DEPRESSION [None]
  - DRUG DEPENDENCE [None]
  - DRUG EXPOSURE DURING PREGNANCY [None]
  - DRUG WITHDRAWAL SYNDROME [None]
  - EMOTIONAL DISTRESS [None]
  - FEELING OF DESPAIR [None]
  - HALLUCINATION, AUDITORY [None]
  - HALLUCINATION, VISUAL [None]
  - HEADACHE [None]
  - INSOMNIA [None]
  - IRRITABILITY [None]
  - MENTAL STATUS CHANGES [None]
  - NERVOUSNESS [None]
  - PAIN [None]
  - PARANOIA [None]
  - PHYSICAL ASSAULT [None]
  - PITYRIASIS ROSEA [None]
  - POLYSUBSTANCE ABUSE [None]
  - PREGNANCY [None]
  - PSYCHOTIC DISORDER [None]
  - SCHIZOAFFECTIVE DISORDER [None]
  - SELF-INJURIOUS IDEATION [None]
  - SUICIDAL IDEATION [None]
  - TOOTH ABSCESS [None]
  - TREMOR [None]
  - URINARY TRACT INFECTION [None]
  - WEIGHT DECREASED [None]
